FAERS Safety Report 7559248-X (Version None)
Quarter: 2011Q2

REPORT INFORMATION
  Report Type: 
  Country: None (occurrence: None)
  Receive Date: 20110613
  Receipt Date: 20110603
  Transmission Date: 20111010
  Serious: Yes (Death, Other)
  Sender: FDA-Public Use
  Company Number: CLOF-1000486

PATIENT

DRUGS (6)
  1. THYMOGLOBULIN [Concomitant]
  2. CLOLAR [Suspect]
     Indication: LEUKAEMIA
     Dosage: QD X 4, INTRAVENOUS
     Route: 042
  3. METHOTREXATE [Concomitant]
  4. BUSULFAN [Suspect]
     Indication: LEUKAEMIA
     Dosage: QD X 4, INTRAVENOUS
     Route: 042
  5. FLUDARABINE PHOSPHATE [Suspect]
     Indication: LEUKAEMIA
     Dosage: QD X 4, INTRAVENOUS
     Route: 042
  6. TACROLIMUS [Concomitant]

REACTIONS (14)
  - NAUSEA [None]
  - DIARRHOEA [None]
  - CARDIAC FAILURE CONGESTIVE [None]
  - PNEUMONIA [None]
  - ACUTE GRAFT VERSUS HOST DISEASE IN LIVER [None]
  - PULMONARY VENO-OCCLUSIVE DISEASE [None]
  - BLOOD BILIRUBIN INCREASED [None]
  - PYREXIA [None]
  - NEOPLASM PROGRESSION [None]
  - ACUTE GRAFT VERSUS HOST DISEASE [None]
  - MUCOSAL INFLAMMATION [None]
  - HEPATOTOXICITY [None]
  - TRANSAMINASES INCREASED [None]
  - RASH [None]
